FAERS Safety Report 7687356-1 (Version None)
Quarter: 2011Q3

REPORT INFORMATION
  Report Type: 
  Country: None (occurrence: None)
  Receive Date: 20110816
  Receipt Date: 20110812
  Transmission Date: 20111222
  Serious: Yes (Other)
  Sender: FDA-Public Use
  Company Number: US-BAYER-2011-072786

PATIENT
  Age: 30 Year
  Sex: Female

DRUGS (2)
  1. UNKNOWN DRUG [Concomitant]
     Dosage: UNK
     Dates: start: 20110811
  2. MAGNEVIST [Suspect]
     Indication: NUCLEAR MAGNETIC RESONANCE IMAGING
     Dosage: 15 ML, ONCE
     Route: 042
     Dates: start: 20110811, end: 20110811

REACTIONS (3)
  - ASTHMA [None]
  - DYSPNOEA [None]
  - ANAPHYLACTIC REACTION [None]
